FAERS Safety Report 16554718 (Version 1)
Quarter: 2019Q3

REPORT INFORMATION
  Report Type: Spontaneous
  Country: DE (occurrence: DE)
  Receive Date: 20190710
  Receipt Date: 20190710
  Transmission Date: 20191004
  Serious: Yes (Life-Threatening, Hospitalization, Other)
  Sender: FDA-Public Use
  Company Number: DE-B.I. PHARMACEUTICALS,INC./RIDGEFIELD-2019-BI-029206

PATIENT
  Sex: Male

DRUGS (1)
  1. SIFROL [Suspect]
     Active Substance: PRAMIPEXOLE
     Indication: RESTLESS LEGS SYNDROME
     Route: 065

REACTIONS (8)
  - Hypotension [Unknown]
  - Syncope [Recovering/Resolving]
  - Restless legs syndrome [Recovering/Resolving]
  - Neuropathy peripheral [Recovering/Resolving]
  - Cardiac arrest [Recovered/Resolved]
  - Cardiac failure [Recovering/Resolving]
  - Oedema [Recovering/Resolving]
  - Muscle spasms [Recovering/Resolving]
